FAERS Safety Report 16377530 (Version 3)
Quarter: 2020Q3

REPORT INFORMATION
  Report Type: Spontaneous
  Country: US (occurrence: US)
  Receive Date: 20190531
  Receipt Date: 20200727
  Transmission Date: 20201102
  Serious: No
  Sender: FDA-Public Use
  Company Number: US-PFIZER INC-2019232933

PATIENT
  Age: 49 Year
  Sex: Female

DRUGS (2)
  1. SUTENT [Suspect]
     Active Substance: SUNITINIB MALATE
     Dosage: 12.5 MG, CYCLIC (DAILY FOR 28 DAYS EVERY 6 WEEKS)
     Route: 048
     Dates: start: 201904
  2. SUTENT [Suspect]
     Active Substance: SUNITINIB MALATE
     Indication: GASTROINTESTINAL STROMAL TUMOUR
     Dosage: 50 MG, CYCLIC (DAILY FOR 4 WEEKS EVERY 6 WEEKS)
     Route: 048
     Dates: start: 201904

REACTIONS (5)
  - Product dose omission issue [Unknown]
  - Abdominal pain upper [Unknown]
  - Neoplasm progression [Unknown]
  - Vomiting [Unknown]
  - Bowel movement irregularity [Unknown]
